FAERS Safety Report 4636055-9 (Version None)
Quarter: 2005Q2

REPORT INFORMATION
  Report Type: 
  Country: None (occurrence: None)
  Receive Date: 20050331
  Receipt Date: 20040510
  Transmission Date: 20051028
  Serious: Yes (Other)
  Sender: FDA-Public Use
  Company Number: 200412301BCC

PATIENT
  Age: 34 Year
  Sex: Female
  Weight: 61.2356 kg

DRUGS (5)
  1. ALEVE [Suspect]
     Indication: PAIN
     Dosage: 220 MG, QD, ORAL
     Route: 048
     Dates: start: 20040509
  2. ALEVE [Suspect]
     Indication: PYREXIA
     Dosage: 220 MG, QD, ORAL
     Route: 048
     Dates: start: 20040509
  3. GENERIC ANTIHISTAMINE [Concomitant]
  4. PROZAC [Concomitant]
  5. ADDERALL 10 [Concomitant]

REACTIONS (1)
  - BLOOD URINE PRESENT [None]
